FAERS Safety Report 14964317 (Version 1)
Quarter: 2018Q2

REPORT INFORMATION
  Report Type: Report from Study
  Country: None (occurrence: GB)
  Receive Date: 20180601
  Receipt Date: 20180601
  Transmission Date: 20180711
  Serious: Yes (Hospitalization)
  Sender: FDA-Public Use
  Company Number: GB-BAUSCH-BL-2018-015610

PATIENT
  Age: 15 Year
  Sex: Female

DRUGS (3)
  1. RITUXIMAB. [Suspect]
     Active Substance: RITUXIMAB
     Indication: NEUROMYELITIS OPTICA SPECTRUM DISORDER
     Dosage: 2 GRAMS EVERY 6 MONTHS
     Route: 065
     Dates: start: 2012
  2. PREDNISOLONE. [Suspect]
     Active Substance: PREDNISOLONE
     Indication: NEUROMYELITIS OPTICA SPECTRUM DISORDER
     Route: 065
  3. MYCOPHENOLATE MOFETIL. [Suspect]
     Active Substance: MYCOPHENOLATE MOFETIL
     Indication: NEUROMYELITIS OPTICA SPECTRUM DISORDER
     Route: 065
     Dates: start: 2011

REACTIONS (3)
  - Lower respiratory tract infection [Recovered/Resolved]
  - Pneumonia [Recovered/Resolved]
  - Sinusitis [Recovered/Resolved]

NARRATIVE: CASE EVENT DATE: 2015
